FAERS Safety Report 6491888-1 (Version None)
Quarter: 2009Q4

REPORT INFORMATION
  Report Type: 
  Country: None (occurrence: None)
  Receive Date: 20091125
  Receipt Date: 20090803
  Transmission Date: 20100525
  Serious: Yes (Other)
  Sender: FDA-Public Use
  Company Number: 2009BH012326

PATIENT
  Age: 53 Year
  Sex: Female

DRUGS (20)
  1. DIANEAL [Suspect]
     Indication: PERITONEAL DIALYSIS
     Dosage: 10.8 L; EVERY DAY; IP
     Route: 033
  2. DIANEAL [Suspect]
     Indication: PERITONEAL DIALYSIS
     Dosage: 2 L; EVERY DAY; IP
     Route: 033
  3. AMITRIPTYLINE [Concomitant]
  4. ASPIRIN [Concomitant]
  5. BACTRIM [Concomitant]
  6. CARVEDILOL [Concomitant]
  7. EPOGEN [Concomitant]
  8. FERROUS SULFATE TAB [Concomitant]
  9. FLUOCINONIDE [Concomitant]
  10. HYDROXYCHLOROQUINE SULFATE [Concomitant]
  11. KLOR-CON [Concomitant]
  12. NOVOLOG [Concomitant]
  13. AMITIZA [Concomitant]
  14. PLAQUENIL [Concomitant]
  15. PRAVACHOL [Concomitant]
  16. PREVACID [Concomitant]
  17. PROTOPIC [Concomitant]
  18. RENAGEL [Concomitant]
  19. TYLENOL W/ CODEINE [Concomitant]
  20. ZANTAC [Concomitant]

REACTIONS (1)
  - PERITONITIS BACTERIAL [None]
